FAERS Safety Report 9166026 (Version 1)
Quarter: 2013Q1

REPORT INFORMATION
  Report Type: Report from Study
  Country: CH (occurrence: CH)
  Receive Date: 20130315
  Receipt Date: 20130315
  Transmission Date: 20140127
  Serious: Yes (Hospitalization)
  Sender: FDA-Public Use
  Company Number: CH-GLAXOSMITHKLINE-B0874320A

PATIENT
  Age: 63 Year
  Sex: Male

DRUGS (7)
  1. CLOBETASOL PROPIONATE [Concomitant]
  2. SQUA-MED [Concomitant]
  3. UNKNOWN DRUG [Concomitant]
     Indication: PSORIASIS
     Route: 061
     Dates: start: 20111209
  4. STELARA [Concomitant]
     Indication: PSORIASIS
     Route: 058
     Dates: start: 20120627
  5. EXCIPIAL U-LIPOLOTION [Concomitant]
     Indication: DRY SKIN
     Route: 061
  6. BETNOVATE [Suspect]
     Indication: PSORIASIS
     Route: 061
     Dates: start: 20111209
  7. TRIAMCINOLONE OINTMENT [Concomitant]
     Indication: PSORIASIS
     Route: 061
     Dates: start: 20111209

REACTIONS (2)
  - Burning sensation [Unknown]
  - Dermatitis exfoliative [Unknown]
